FAERS Safety Report 4773754-2 (Version None)
Quarter: 2005Q3

REPORT INFORMATION
  Report Type: 
  Country: None (occurrence: None)
  Receive Date: 20050920
  Receipt Date: 20050908
  Transmission Date: 20060218
  Serious: Yes (Hospitalization)
  Sender: FDA-Public Use
  Company Number: CA-MERCK-0509CAN00069

PATIENT
  Age: 56 Year
  Sex: Female

DRUGS (2)
  1. HYDRODIURIL [Suspect]
     Indication: HYPERTENSION
     Route: 048
  2. ALBUTEROL [Concomitant]
     Route: 055

REACTIONS (1)
  - NON-CARDIOGENIC PULMONARY OEDEMA [None]
